FAERS Safety Report 10157728 (Version 1)
Quarter: 2014Q2

REPORT INFORMATION
  Report Type: Spontaneous
  Country: US (occurrence: US)
  Receive Date: 20140507
  Receipt Date: 20140507
  Transmission Date: 20141212
  Serious: No
  Sender: FDA-Public Use
  Company Number: US-009507513-1404USA014554

PATIENT
  Sex: Female

DRUGS (1)
  1. A + D ORIGINAL OINTMENT [Suspect]
     Indication: PRODUCT USED FOR UNKNOWN INDICATION
     Dosage: STRENGTH: PETROLATUM 53.4%, LANOLIN 15.5%
     Route: 061

REACTIONS (2)
  - Expired product administered [Unknown]
  - Product expiration date issue [Unknown]
